FAERS Safety Report 17502400 (Version 2)
Quarter: 2020Q1

REPORT INFORMATION
  Report Type: Report from Study
  Country: US (occurrence: US)
  Receive Date: 20200305
  Receipt Date: 20200331
  Transmission Date: 20200409
  Serious: Yes (Other)
  Sender: FDA-Public Use
  Company Number: US-ROCHE-2323826

PATIENT
  Sex: Female
  Weight: 72.64 kg

DRUGS (12)
  1. OCREVUS [Suspect]
     Active Substance: OCRELIZUMAB
     Dosage: 11/MAR/2019: FIRST FULL DOSE
     Route: 042
     Dates: start: 2018
  2. DALFAMPRIDINE. [Concomitant]
     Active Substance: DALFAMPRIDINE
     Indication: GAIT DISTURBANCE
     Dosage: ONGOING: YES
     Route: 048
  3. VENLAFAXINE [Concomitant]
     Active Substance: VENLAFAXINE HYDROCHLORIDE
     Indication: DEPRESSION
     Dosage: DOSE 225; ONGOING YES
     Route: 048
  4. NAPROXEN. [Concomitant]
     Active Substance: NAPROXEN
     Indication: HEADACHE
  5. OCREVUS [Suspect]
     Active Substance: OCRELIZUMAB
     Route: 042
     Dates: start: 20180911
  6. VENLAFAXINE [Concomitant]
     Active Substance: VENLAFAXINE HYDROCHLORIDE
     Indication: NEURITIS
  7. FOSAMAX [Concomitant]
     Active Substance: ALENDRONATE SODIUM
     Indication: SPINAL STENOSIS
     Dosage: ONGOING: YES
     Route: 048
  8. NAPROXEN. [Concomitant]
     Active Substance: NAPROXEN
     Indication: MYALGIA
     Dosage: ONGOING:YES
     Route: 048
  9. OCREVUS [Suspect]
     Active Substance: OCRELIZUMAB
     Indication: SECONDARY PROGRESSIVE MULTIPLE SCLEROSIS
     Dosage: ONGOING; YES
     Route: 042
     Dates: start: 20180824
  10. GABAPENTIN. [Concomitant]
     Active Substance: GABAPENTIN
     Indication: NEURALGIA
     Route: 048
  11. VENLAFAXINE [Concomitant]
     Active Substance: VENLAFAXINE HYDROCHLORIDE
     Indication: NEURALGIA
  12. REQUIP [Concomitant]
     Active Substance: ROPINIROLE HYDROCHLORIDE
     Indication: RESTLESS LEGS SYNDROME
     Dosage: ONGOING YES
     Route: 048

REACTIONS (9)
  - Upper limb fracture [Recovered/Resolved]
  - Hand fracture [Recovered/Resolved]
  - Intentional product use issue [Unknown]
  - Weight increased [Unknown]
  - Fall [Recovered/Resolved]
  - Body height decreased [Unknown]
  - Multiple sclerosis relapse [Recovered/Resolved]
  - Postoperative wound infection [Unknown]
  - Off label use [Unknown]

NARRATIVE: CASE EVENT DATE: 2019
